FAERS Safety Report 5963701-X (Version None)
Quarter: 2008Q4

REPORT INFORMATION
  Report Type: 
  Country: None (occurrence: None)
  Receive Date: 20081121
  Receipt Date: 20081121
  Transmission Date: 20090506
  Serious: Yes (Hospitalization)
  Sender: FDA-Public Use
  Company Number: None

PATIENT
  Age: 77 Year
  Sex: Male
  Weight: 56.6996 kg

DRUGS (12)
  1. CETUXIMAB 750 MG/M2 [Suspect]
     Indication: HEAD AND NECK CANCER
     Dosage: 1260 MG EVERY OTHER WEEK IV
     Route: 042
     Dates: start: 20080916
  2. FENTANYL-100 [Concomitant]
  3. SCOPOLAMINE [Concomitant]
  4. LOPRESSOR [Concomitant]
  5. PRAVASTATIN [Concomitant]
  6. ASPIRIN [Concomitant]
  7. MORPHINE ELIXIR [Concomitant]
  8. MIRALAX [Concomitant]
  9. ZANTAC [Concomitant]
  10. LACTULOSE [Concomitant]
  11. DESIPRAMINE HCL [Concomitant]
  12. ENALAPRIL MALEATE [Concomitant]

REACTIONS (6)
  - CARDIO-RESPIRATORY ARREST [None]
  - DEVICE LEAKAGE [None]
  - HYPOTENSION [None]
  - NECK PAIN [None]
  - PNEUMONIA ASPIRATION [None]
  - TACHYCARDIA [None]
